FAERS Safety Report 6551772-1 (Version None)
Quarter: 2010Q1

REPORT INFORMATION
  Report Type: 
  Country: None (occurrence: None)
  Receive Date: 20100120
  Receipt Date: 20100113
  Transmission Date: 20100710
  Serious: No
  Sender: FDA-Public Use
  Company Number: 2009SP040758

PATIENT
  Sex: Female
  Weight: 51 kg

DRUGS (1)
  1. IMPLANON [Suspect]
     Indication: CONTRACEPTION
     Dosage: 1 DF
     Dates: start: 20070628

REACTIONS (2)
  - ABORTION [None]
  - PREGNANCY WITH IMPLANT CONTRACEPTIVE [None]
